FAERS Safety Report 16038142 (Version 3)
Quarter: 2019Q1

REPORT INFORMATION
  Report Type: Spontaneous
  Country: TN (occurrence: TN)
  Receive Date: 20190305
  Receipt Date: 20190322
  Transmission Date: 20190418
  Serious: Yes (Life-Threatening, Hospitalization)
  Sender: FDA-Public Use
  Company Number: TN-MYLANLABS-2019M1020444

PATIENT
  Age: 37 Year
  Sex: Female
  Weight: 80 kg

DRUGS (5)
  1. HERTRAZ [Suspect]
     Active Substance: TRASTUZUMAB
     Indication: INTRADUCTAL PROLIFERATIVE BREAST LESION
     Dosage: UNK
     Route: 042
  2. HERTRAZ [Suspect]
     Active Substance: TRASTUZUMAB
     Indication: BREAST CANCER
     Dosage: 6 MILLIGRAM, Q3W
     Route: 042
  3. DOCETAXEL. [Suspect]
     Active Substance: DOCETAXEL
     Indication: BREAST CANCER
     Dosage: 80 MILLIGRAM, QD
  4. DOCETAXEL. [Concomitant]
     Active Substance: DOCETAXEL
  5. ZOLADEX [Concomitant]
     Active Substance: GOSERELIN ACETATE

REACTIONS (12)
  - Renal failure [Not Recovered/Not Resolved]
  - Cardiac failure [Unknown]
  - Myocarditis [Recovering/Resolving]
  - Glomerulonephritis [Not Recovered/Not Resolved]
  - Nephrotic syndrome [Unknown]
  - Generalised oedema [Unknown]
  - Vulvovaginal pruritus [Unknown]
  - Dyspnoea [Unknown]
  - Blood creatinine abnormal [Unknown]
  - Ejection fraction decreased [Unknown]
  - Proteinuria [Not Recovered/Not Resolved]
  - Acute kidney injury [Unknown]

NARRATIVE: CASE EVENT DATE: 20190202
